FAERS Safety Report 14007420 (Version 1)
Quarter: 2017Q3

REPORT INFORMATION
  Report Type: Spontaneous
  Country: US (occurrence: None)
  Receive Date: 20170922
  Receipt Date: 20170922
  Transmission Date: 20171128
  Serious: No
  Sender: FDA-Public Use
  Company Number: None

PATIENT
  Age: 15 Year
  Sex: Male
  Weight: 58.97 kg

DRUGS (1)
  1. NORDITROPIN [Suspect]
     Active Substance: SOMATROPIN
     Indication: DRUG THERAPY
     Dosage: 3MG 6DAYS A WEEK BY MOUTH
     Route: 048
     Dates: start: 20140611

REACTIONS (3)
  - Hostility [None]
  - Suicidal ideation [None]
  - Anger [None]

NARRATIVE: CASE EVENT DATE: 20170706
